FAERS Safety Report 21304477 (Version 1)
Quarter: 2022Q3

REPORT INFORMATION
  Report Type: Spontaneous
  Country: US (occurrence: None)
  Receive Date: 20220907
  Receipt Date: 20220907
  Transmission Date: 20221027
  Serious: No
  Sender: FDA-Public Use
  Company Number: US-ARIS GLOBAL-202108-1420

PATIENT
  Age: 63 Year
  Sex: Male

DRUGS (12)
  1. OXERVATE [Suspect]
     Active Substance: CENEGERMIN-BKBJ
     Indication: Neurotrophic keratopathy
     Route: 047
     Dates: start: 20210811, end: 20211006
  2. FINASTERIDE [Concomitant]
     Active Substance: FINASTERIDE
  3. ATORVASTATIN CALCIUM [Concomitant]
     Active Substance: ATORVASTATIN CALCIUM
  4. METOPROLOL w/HYDROCHLOROTHIAZIDE [Concomitant]
  5. LISINOPRIL [Concomitant]
     Active Substance: LISINOPRIL
  6. ZINC [Concomitant]
     Active Substance: ZINC
  7. ACYCLOVIR [Concomitant]
     Active Substance: ACYCLOVIR
  8. ELIQUIS [Concomitant]
     Active Substance: APIXABAN
  9. VITAMINS [Concomitant]
     Active Substance: VITAMINS
  10. HYDROCHLOROTHIAZIDE [Concomitant]
     Active Substance: HYDROCHLOROTHIAZIDE
  11. VITAMIN C [Concomitant]
     Active Substance: ASCORBIC ACID
  12. BACLOFEN [Concomitant]
     Active Substance: BACLOFEN

REACTIONS (3)
  - Photophobia [Unknown]
  - Accidental overdose [Unknown]
  - Product use issue [Unknown]
